FAERS Safety Report 4280282-X (Version None)
Quarter: 2004Q1

REPORT INFORMATION
  Report Type: 
  Country: None (occurrence: None)
  Receive Date: 20040126
  Receipt Date: 20040108
  Transmission Date: 20041129
  Serious: Yes (Hospitalization)
  Sender: FDA-Public Use
  Company Number: 8004459

PATIENT
  Age: 47 Year
  Sex: Female

DRUGS (7)
  1. KEPPRA [Suspect]
     Indication: CONVULSION
     Dosage: PO
     Route: 048
     Dates: start: 20030301, end: 20030101
  2. KEPPRA [Suspect]
     Indication: CONVULSION
     Dosage: 500 MG 2/D PO
     Route: 048
     Dates: start: 20030101, end: 20030825
  3. DEPAKOTE [Concomitant]
  4. DILANTIN [Concomitant]
  5. LAMICTAL [Concomitant]
  6. HALDOL [Concomitant]
  7. SEROQUEL [Concomitant]

REACTIONS (3)
  - ASTHENIA [None]
  - MALAISE [None]
  - PLATELET COUNT DECREASED [None]
